FAERS Safety Report 15007051 (Version 1)
Quarter: 2018Q2

REPORT INFORMATION
  Report Type: Spontaneous
  Country: US (occurrence: US)
  Receive Date: 20180526
  Receipt Date: 20180526
  Transmission Date: 20180711
  Serious: Yes (Death, Life-Threatening, Hospitalization, Disabling, Other)
  Sender: FDA-Public Use
  Company Number: None

PATIENT
  Age: 75 Year
  Sex: Male
  Weight: 85.5 kg

DRUGS (1)
  1. OMEPRAZOLE. [Suspect]
     Active Substance: OMEPRAZOLE
     Indication: DYSPEPSIA
     Route: 048
     Dates: start: 20170822, end: 20171117

REACTIONS (6)
  - Disorientation [None]
  - Rectal haemorrhage [None]
  - Vomiting [None]
  - Renal failure [None]
  - Weight decreased [None]
  - Hepatic failure [None]

NARRATIVE: CASE EVENT DATE: 20171126
